FAERS Safety Report 7451258-6 (Version None)
Quarter: 2011Q2

REPORT INFORMATION
  Report Type: 
  Country: None (occurrence: None)
  Receive Date: 20110429
  Receipt Date: 20110429
  Transmission Date: 20111010
  Serious: No
  Sender: FDA-Public Use
  Company Number: None

PATIENT
  Age: 55 Year
  Sex: Female

DRUGS (2)
  1. ALPRAZOLAM [Suspect]
     Indication: ANXIETY
     Dosage: TAKE 1 TABLET FOUR TIMES A DAY YEARS
  2. ALPRAZOLAM [Suspect]
     Indication: PANIC ATTACK
     Dosage: TAKE 1 TABLET FOUR TIMES A DAY YEARS

REACTIONS (5)
  - PRODUCT FRIABLE [None]
  - SEDATION [None]
  - PRODUCT QUALITY ISSUE [None]
  - DRUG INEFFECTIVE [None]
  - PRODUCT COLOUR ISSUE [None]
